FAERS Safety Report 15617461 (Version 2)
Quarter: 2018Q4

REPORT INFORMATION
  Report Type: Spontaneous
  Country: TR (occurrence: TR)
  Receive Date: 20181114
  Receipt Date: 20181126
  Transmission Date: 20190205
  Serious: Yes (Other)
  Sender: FDA-Public Use
  Company Number: PHHY2018TR152291

PATIENT
  Age: 44 Year
  Sex: Female

DRUGS (2)
  1. SANDIMMUN NEORAL [Suspect]
     Active Substance: CYCLOSPORINE
     Dosage: 250 MG, UNK
     Route: 065
     Dates: start: 20181011
  2. SANDIMMUN NEORAL [Suspect]
     Active Substance: CYCLOSPORINE
     Indication: PRODUCT USED FOR UNKNOWN INDICATION
     Dosage: 150 MG, UNK (25 MG 2 CAP AT 08:00 IN THE MORNING AND 16:00 IN THE NOON, 100 MG MIDNIGHT BEFORE)
     Route: 065

REACTIONS (4)
  - Drug ineffective [Recovering/Resolving]
  - Road traffic accident [Recovering/Resolving]
  - Pain [Recovering/Resolving]
  - Pancreatitis [Recovering/Resolving]
